FAERS Safety Report 7383262-0 (Version None)
Quarter: 2011Q1

REPORT INFORMATION
  Report Type: 
  Country: None (occurrence: None)
  Receive Date: 20110325
  Receipt Date: 20110325
  Transmission Date: 20110831
  Serious: Yes (Hospitalization)
  Sender: FDA-Public Use
  Company Number: None

PATIENT
  Age: 107 Year
  Sex: Male
  Weight: 60 kg

DRUGS (6)
  1. COUMADIN [Suspect]
     Indication: ATRIAL FIBRILLATION
     Dosage: 4MG DAILY PO CHRONIC
     Route: 048
  2. CEPHALEXIN [Concomitant]
  3. URTICA [Concomitant]
  4. LISINOPRIL [Concomitant]
  5. LEVOTHYROXINE [Concomitant]
  6. LASIX [Concomitant]

REACTIONS (7)
  - URINARY TRACT INFECTION [None]
  - PNEUMONIA [None]
  - GASTROINTESTINAL HAEMORRHAGE [None]
  - HAEMOGLOBIN DECREASED [None]
  - RENAL FAILURE ACUTE [None]
  - HAEMATOCRIT DECREASED [None]
  - INTERNATIONAL NORMALISED RATIO INCREASED [None]
